FAERS Safety Report 19237451 (Version 1)
Quarter: 2021Q2

REPORT INFORMATION
  Report Type: Spontaneous
  Country: US (occurrence: US)
  Receive Date: 20210510
  Receipt Date: 20210510
  Transmission Date: 20210717
  Serious: No
  Sender: FDA-Public Use
  Company Number: US-ELI_LILLY_AND_COMPANY-US202105003534

PATIENT
  Sex: Female

DRUGS (2)
  1. HUMALOG KWIKPEN [Suspect]
     Active Substance: INSULIN LISPRO
     Indication: TYPE 2 DIABETES MELLITUS
     Dosage: 44 U, UNKNOWN
     Route: 058
  2. HUMALOG KWIKPEN [Suspect]
     Active Substance: INSULIN LISPRO
     Dosage: 60 U, UNKNOWN
     Route: 058

REACTIONS (2)
  - Fat tissue increased [Not Recovered/Not Resolved]
  - Insulin resistance [Not Recovered/Not Resolved]
